FAERS Safety Report 6690351-2 (Version None)
Quarter: 2010Q2

REPORT INFORMATION
  Report Type: 
  Country: None (occurrence: None)
  Receive Date: 20100421
  Receipt Date: 20100413
  Transmission Date: 20101027
  Serious: Yes (Hospitalization, Other)
  Sender: FDA-Public Use
  Company Number: US-ASTRAZENECA-2010SE08713

PATIENT
  Age: 25 Year
  Sex: Female
  Weight: 79.4 kg

DRUGS (1)
  1. SEROQUEL [Suspect]
     Route: 048

REACTIONS (3)
  - AFFECTIVE DISORDER [None]
  - CATARACT [None]
  - POLYSUBSTANCE DEPENDENCE [None]
